FAERS Safety Report 23310315 (Version 1)
Quarter: 2023Q4

REPORT INFORMATION
  Report Type: Spontaneous
  Country: US (occurrence: None)
  Receive Date: 20231218
  Receipt Date: 20231218
  Transmission Date: 20240109
  Serious: Yes (Hospitalization)
  Sender: FDA-Public Use
  Company Number: None

PATIENT
  Age: 61 Year
  Sex: Male
  Weight: 82.4 kg

DRUGS (11)
  1. GEMTUZUMAB OZOGAMICIN [Suspect]
     Active Substance: GEMTUZUMAB OZOGAMICIN
     Indication: Acute myeloid leukaemia recurrent
     Dosage: OTHER FREQUENCY : DAYS 1,4 AND 7;?
     Route: 041
     Dates: start: 202311, end: 202312
  2. TAGRAXOFUSP-ERZS [Suspect]
     Active Substance: TAGRAXOFUSP-ERZS
     Indication: Acute myeloid leukaemia recurrent
     Dosage: OTHER QUANTITY : 7 UG/KG;?OTHER FREQUENCY : DAILY, DAYS 10-12;?
     Route: 041
     Dates: start: 20231209, end: 20231210
  3. ACYCLOVIR [Concomitant]
     Active Substance: ACYCLOVIR
  4. ATOVAQUONE [Concomitant]
     Active Substance: ATOVAQUONE
  5. ALLOPURINOL [Concomitant]
     Active Substance: ALLOPURINOL
  6. MOXIFLOXACIN [Concomitant]
     Active Substance: MOXIFLOXACIN
  7. MICAFUGIN [Concomitant]
  8. FAMOTIDINE [Concomitant]
  9. DIPHENHYDRAMINE [Concomitant]
     Active Substance: DIPHENHYDRAMINE
  10. ACETAMINOPHEN [Concomitant]
     Active Substance: ACETAMINOPHEN
  11. METHYLPREDNISOLONE [Concomitant]
     Active Substance: METHYLPREDNISOLONE

REACTIONS (8)
  - Lactic acidosis [None]
  - Pyrexia [None]
  - Chills [None]
  - Diarrhoea [None]
  - Cytomegalovirus infection reactivation [None]
  - Cholecystitis [None]
  - Therapy cessation [None]
  - Acute myeloid leukaemia [None]

NARRATIVE: CASE EVENT DATE: 20231211
